FAERS Safety Report 23567139 (Version 1)
Quarter: 2024Q1

REPORT INFORMATION
  Report Type: Report from Study
  Country: GB (occurrence: GB)
  Receive Date: 20240226
  Receipt Date: 20240226
  Transmission Date: 20240410
  Serious: Yes (Other)
  Sender: FDA-Public Use
  Company Number: GB-SAMSUNG BIOEPIS-SB-2024-04649

PATIENT
  Age: 40 Year
  Sex: Female

DRUGS (1)
  1. IMRALDI [Suspect]
     Active Substance: ADALIMUMAB
     Indication: Spinal osteoarthritis
     Dosage: 40 M/0.8 ML
     Route: 058
     Dates: start: 20240123

REACTIONS (9)
  - Hypersomnia [Unknown]
  - Fall [Unknown]
  - Facial pain [Unknown]
  - Swelling face [Unknown]
  - Face injury [Unknown]
  - Urinary incontinence [Unknown]
  - Seizure [Unknown]
  - Drug hypersensitivity [Unknown]
  - Off label use [Unknown]

NARRATIVE: CASE EVENT DATE: 20240123
